FAERS Safety Report 16702022 (Version 4)
Quarter: 2019Q3

REPORT INFORMATION
  Report Type: Report from Study
  Country: GB (occurrence: GB)
  Receive Date: 20190814
  Receipt Date: 20190927
  Transmission Date: 20191004
  Serious: Yes (Life-Threatening, Hospitalization)
  Sender: FDA-Public Use
  Company Number: GB-CELGENEUS-GBR-20190803552

PATIENT
  Age: 50 Year
  Sex: Male
  Weight: 83 kg

DRUGS (11)
  1. MORPHINE SULPHATE [Concomitant]
     Active Substance: MORPHINE SULFATE
     Indication: PAIN
     Dosage: 10MG/5ML
     Route: 048
     Dates: start: 20190717
  2. NYSTATIN. [Concomitant]
     Active Substance: NYSTATIN
     Indication: ANTIFUNGAL TREATMENT
     Dosage: 100 000 IU/ML
     Route: 048
     Dates: start: 20190717
  3. BIOTENE ORALBALANCE [Concomitant]
     Indication: SALIVA ALTERED
     Dosage: 400 MILLIGRAM
     Route: 061
     Dates: start: 20190717
  4. TRIUMEQ [Concomitant]
     Active Substance: ABACAVIR SULFATE\DOLUTEGRAVIR SODIUM\LAMIVUDINE
     Indication: HIV INFECTION
     Dosage: 50MG/600MG/300MG
     Route: 048
     Dates: start: 20141017
  5. DOCUSATE SODIUM. [Concomitant]
     Active Substance: DOCUSATE SODIUM
     Indication: CONSTIPATION
     Dosage: 400 MILLIGRAM
     Route: 048
     Dates: start: 20190717
  6. DIFFLAM [Concomitant]
     Active Substance: BENZYDAMINE HYDROCHLORIDE
     Indication: MUCOSAL INFLAMMATION
     Dosage: 15 MILLILITER
     Route: 048
     Dates: start: 20190717
  7. AMITRIPTYLINE [Concomitant]
     Active Substance: AMITRIPTYLINE
     Indication: INSOMNIA
     Dosage: 20 MILLIGRAM
     Route: 048
     Dates: start: 20190731
  8. ABRAXANE [Suspect]
     Active Substance: PACLITAXEL
     Indication: PANCREATIC CARCINOMA METASTATIC
     Route: 041
     Dates: start: 20190712, end: 20190726
  9. GEMCITABINE. [Suspect]
     Active Substance: GEMCITABINE
     Indication: PANCREATIC CARCINOMA METASTATIC
     Route: 041
     Dates: start: 20190712, end: 20190726
  10. MORPHINE MODIFIED RELEASE TABLET (MST) [Concomitant]
     Indication: PAIN
     Dosage: 20 MILLIGRAM
     Route: 048
     Dates: start: 20190717
  11. DOMPERIDONE [Concomitant]
     Active Substance: DOMPERIDONE
     Indication: NAUSEA
     Dosage: 30 MILLIGRAM
     Route: 048
     Dates: start: 20190712

REACTIONS (2)
  - Infection [Not Recovered/Not Resolved]
  - Pulmonary embolism [Not Recovered/Not Resolved]

NARRATIVE: CASE EVENT DATE: 20190805
